FAERS Safety Report 9314047 (Version 1)
Quarter: 2013Q2

REPORT INFORMATION
  Report Type: Spontaneous
  Country: US (occurrence: None)
  Receive Date: 20130524
  Receipt Date: 20130524
  Transmission Date: 20140414
  Serious: No
  Sender: FDA-Public Use
  Company Number: None

PATIENT
  Age: 73 Year
  Sex: Male

DRUGS (1)
  1. DABIGATRAN [Suspect]
     Dates: start: 20130306, end: 20130315

REACTIONS (2)
  - Gastrooesophageal reflux disease [None]
  - Dyspepsia [None]
